FAERS Safety Report 8571747-0 (Version None)
Quarter: 2012Q3

REPORT INFORMATION
  Report Type: 
  Country: None (occurrence: None)
  Receive Date: 20120806
  Receipt Date: 20120802
  Transmission Date: 20120928
  Serious: Yes (Life-Threatening, Hospitalization, Other)
  Sender: FDA-Public Use
  Company Number: PHHY2012BR057092

PATIENT
  Sex: Female

DRUGS (1)
  1. DIOVAN [Suspect]
     Indication: CARDIAC DISORDER
     Dosage: 1 DF/DAY (160 MG)
     Route: 048
     Dates: start: 20000101

REACTIONS (6)
  - FEELING ABNORMAL [None]
  - PNEUMONIA [None]
  - MALAISE [None]
  - CONJUNCTIVITIS [None]
  - HAEMATEMESIS [None]
  - CARDIAC OUTPUT DECREASED [None]
